FAERS Safety Report 23628043 (Version 1)
Quarter: 2024Q1

REPORT INFORMATION
  Report Type: Spontaneous
  Country: SE (occurrence: SE)
  Receive Date: 20240313
  Receipt Date: 20240313
  Transmission Date: 20240409
  Serious: Yes (Death, Hospitalization, Other)
  Sender: FDA-Public Use
  Company Number: None

PATIENT
  Sex: Female

DRUGS (3)
  1. ELIQUIS [Suspect]
     Active Substance: APIXABAN
     Indication: Atrial fibrillation
     Dates: end: 20240108
  2. INNOHEP [Concomitant]
     Active Substance: TINZAPARIN SODIUM
     Indication: Product used for unknown indication
     Dates: start: 20240109, end: 20240116
  3. FUROSEMIDE [Concomitant]
     Active Substance: FUROSEMIDE
     Indication: Product used for unknown indication
     Dates: start: 202401, end: 202401

REACTIONS (16)
  - Cardiac failure acute [Fatal]
  - Cardiac failure [Fatal]
  - Anuria [Fatal]
  - Jugular vein distension [Fatal]
  - Blood pressure decreased [Fatal]
  - Hypovolaemia [Fatal]
  - Depressed level of consciousness [Fatal]
  - Hypercapnia [Fatal]
  - Abdominal wall haematoma [Fatal]
  - Oxygen saturation decreased [Fatal]
  - Heart rate increased [Fatal]
  - Iron deficiency anaemia [Fatal]
  - Haemoglobin decreased [Fatal]
  - Epistaxis [Unknown]
  - Shock haemorrhagic [Fatal]
  - Irregular breathing [Fatal]

NARRATIVE: CASE EVENT DATE: 20220101
